FAERS Safety Report 23965158 (Version 2)
Quarter: 2024Q3

REPORT INFORMATION
  Report Type: Spontaneous
  Country: US (occurrence: US)
  Receive Date: 20240612
  Receipt Date: 20240701
  Transmission Date: 20241016
  Serious: Yes (Death, Other)
  Sender: AMGEN
  Company Number: US-AMGEN-USASP2024113276

PATIENT

DRUGS (1)
  1. RITUXIMAB [Suspect]
     Active Substance: RITUXIMAB
     Indication: Systemic lupus erythematosus
     Dosage: UNK
     Route: 065

REACTIONS (5)
  - Cardiac death [Fatal]
  - Cerebrovascular accident [Unknown]
  - Myocardial infarction [Unknown]
  - Drug effective for unapproved indication [Unknown]
  - Off label use [Unknown]
